FAERS Safety Report 7762411-6 (Version None)
Quarter: 2011Q3

REPORT INFORMATION
  Report Type: 
  Country: None (occurrence: None)
  Receive Date: 20110920
  Receipt Date: 20110914
  Transmission Date: 20111222
  Serious: Yes (Other)
  Sender: FDA-Public Use
  Company Number: JP-ROCHE-803028

PATIENT
  Age: 63 Year
  Sex: Male

DRUGS (5)
  1. AVASTIN [Suspect]
     Indication: COLON CANCER METASTATIC
     Dosage: UNCERTAIN DOSAGE AND FIVE CYCLES
     Route: 041
  2. EFUDEX [Concomitant]
     Dosage: UNCERTAIN DOSAGE AND NINE CYCLES
     Route: 040
  3. IRINOTECAN HCL [Concomitant]
     Dosage: UNCERTAIN DOSAGE AND NINE CYCLES
     Route: 041
  4. EFUDEX [Concomitant]
     Dosage: UNCERTAIN DOSAGE AND NINE CYCLES
     Route: 041
  5. LEUCOVORIN CALCIUM [Concomitant]
     Dosage: UNCERTAIN DOSAGE AND NINE CYCLES
     Route: 041

REACTIONS (2)
  - IMPAIRED HEALING [None]
  - HEPATIC FAILURE [None]
